FAERS Safety Report 24059459 (Version 1)
Quarter: 2024Q3

REPORT INFORMATION
  Report Type: Spontaneous
  Country: NL (occurrence: NL)
  Receive Date: 20240708
  Receipt Date: 20240708
  Transmission Date: 20241016
  Serious: Yes (Hospitalization, Other)
  Sender: ASTELLAS
  Company Number: NL-Daleco-2024-NL-000057

PATIENT
  Age: 83 Year
  Sex: Female

DRUGS (33)
  1. SOLIFENACIN [Interacting]
     Active Substance: SOLIFENACIN
     Indication: Product used for unknown indication
     Route: 048
  2. NITROLINGUAL [Interacting]
     Active Substance: NITROGLYCERIN
     Indication: Chest pain
     Dosage: 1 DF, AS NEEDED (1 SPRAY UNDER THE TONGUE. REPEAT AFTER 5 MINUTES IF NECESSARY)
     Route: 050
  3. BECLOMETHASONE DIPROPIONATE\FORMOTEROL FUMARATE\GLYCOPYRROLATE [Interacting]
     Active Substance: BECLOMETHASONE DIPROPIONATE\FORMOTEROL FUMARATE\GLYCOPYRROLATE
     Indication: Product used for unknown indication
     Dosage: UNK UNK, UNKNOWN FREQ. 987/5/9MCG/D 120)
     Route: 065
     Dates: end: 20230821
  4. BECLOMETHASONE DIPROPIONATE\FORMOTEROL FUMARATE\GLYCOPYRROLATE [Interacting]
     Active Substance: BECLOMETHASONE DIPROPIONATE\FORMOTEROL FUMARATE\GLYCOPYRROLATE
     Dosage: UNK UNK, UNKNOWN FREQ. (87/5/9MCG/D 120)
     Route: 065
     Dates: start: 20230821, end: 20231213
  5. BECLOMETHASONE DIPROPIONATE\FORMOTEROL FUMARATE\GLYCOPYRROLATE [Interacting]
     Active Substance: BECLOMETHASONE DIPROPIONATE\FORMOTEROL FUMARATE\GLYCOPYRROLATE
     Dosage: 2 DF, EVERY 12 HOURS (87/5/9MCG/D 120)
     Route: 065
     Dates: start: 20231213
  6. IMDUR [Interacting]
     Active Substance: ISOSORBIDE MONONITRATE
     Indication: Product used for unknown indication
     Dosage: 1 DF, ONCE DAILY (MORNING)
     Route: 048
     Dates: end: 20230831
  7. IMDUR [Interacting]
     Active Substance: ISOSORBIDE MONONITRATE
     Dosage: 1 DF, ONCE DAILY (MORNING)
     Route: 048
     Dates: start: 20230831
  8. TRANYLCYPROMINE SULFATE [Interacting]
     Active Substance: TRANYLCYPROMINE SULFATE
     Indication: Psychotic disorder
     Route: 048
  9. TRANYLCYPROMINE SULFATE [Interacting]
     Active Substance: TRANYLCYPROMINE SULFATE
     Dosage: UNK UNK, UNKNOWN FREQ.
     Route: 048
     Dates: start: 2016
  10. TRANYLCYPROMINE SULFATE [Interacting]
     Active Substance: TRANYLCYPROMINE SULFATE
     Dosage: 3 DF, EVERY 12 HOURS (DOSE OF INCREASED TO 3 TABLETS TWICE A DAY)
     Route: 048
     Dates: start: 2022
  11. TRANYLCYPROMINE SULFATE [Interacting]
     Active Substance: TRANYLCYPROMINE SULFATE
     Dosage: 1.5 DF, EVERY 12 HOURS (MORNING AND EVENING)
     Route: 048
  12. TRANYLCYPROMINE [Suspect]
     Active Substance: TRANYLCYPROMINE
     Indication: Product used for unknown indication
     Dosage: 1.5 DF, EVERY 12 HOURS (MORNING AND EVENING)
     Route: 048
     Dates: end: 20240508
  13. ASPIRIN [Interacting]
     Active Substance: ASPIRIN
     Indication: Product used for unknown indication
     Dosage: 1 DF, ONCE DAILY (MORNING)
     Route: 048
  14. ACETAMINOPHEN [Interacting]
     Active Substance: ACETAMINOPHEN
     Indication: Product used for unknown indication
     Dosage: UNK UNK, OTHER (ACCORDING TO DIRECTIONS IN PATIENT INFORMATION LEAFLET)
     Route: 048
  15. ACETAMINOPHEN [Interacting]
     Active Substance: ACETAMINOPHEN
     Route: 048
  16. NAPROXEN [Interacting]
     Active Substance: NAPROXEN
     Indication: Product used for unknown indication
     Dosage: 1 DF, ONCE DAILY (AS NEEDED)
     Route: 048
  17. PRAVASTATIN [Interacting]
     Active Substance: PRAVASTATIN
     Indication: Product used for unknown indication
     Dosage: 1 DF, ONCE DAILY (BEFORE THE NIGHT)
     Route: 048
  18. BUMETANIDE [Interacting]
     Active Substance: BUMETANIDE
     Indication: Product used for unknown indication
     Route: 048
  19. DARIFENACIN [Interacting]
     Active Substance: DARIFENACIN
     Indication: Product used for unknown indication
     Dosage: 1 DF, ONCE DAILY (BEFORE THE NIGHT)
     Route: 048
     Dates: end: 20240607
  20. DILTIAZEM [Interacting]
     Active Substance: DILTIAZEM
     Indication: Product used for unknown indication
     Route: 048
     Dates: end: 20240605
  21. FOLIC ACID [Concomitant]
     Active Substance: FOLIC ACID
     Indication: Product used for unknown indication
     Dosage: 1 DF, ONCE DAILY (MORNING)
     Route: 048
  22. PROLIA [Concomitant]
     Active Substance: DENOSUMAB
     Indication: Product used for unknown indication
     Dosage: 1 DF, OTHER (ONCE EVERY 6 MONTHS)
     Route: 051
  23. POLYETHYLENE GLYCOLS [Concomitant]
     Active Substance: POLYETHYLENE GLYCOLS
     Indication: Product used for unknown indication
     Dosage: 1 DF, EVERY 12 HOURS (AS NEEDED TWICE A DAY 1 SACHET)
     Route: 048
  24. CALCIUM\CHOLECALCIFEROL [Concomitant]
     Active Substance: CALCIUM\CHOLECALCIFEROL
     Indication: Product used for unknown indication
     Dosage: 1 DF, ONCE DAILY (MORNING)
     Route: 048
     Dates: start: 20231109
  25. CALCIUM\CHOLECALCIFEROL [Concomitant]
     Active Substance: CALCIUM\CHOLECALCIFEROL
     Dosage: UNK UNK, UNKNOWN FREQ.
     Route: 048
     Dates: end: 20231109
  26. ATROVENT [Concomitant]
     Active Substance: IPRATROPIUM BROMIDE
     Indication: Product used for unknown indication
     Dosage: 8 DF, ONCE DAILY (20 MCG/DO 200 DO)
     Route: 050
     Dates: start: 20231003
  27. ATROVENT [Concomitant]
     Active Substance: IPRATROPIUM BROMIDE
     Dosage: 2 DF, EVERY 8 HOURS (AER 20MCG/D)
     Route: 050
     Dates: start: 20230821, end: 20231003
  28. ATROVENT [Concomitant]
     Active Substance: IPRATROPIUM BROMIDE
     Dosage: 2 DF, EVERY 6 HOURS (INH 20MCG/DO)
     Route: 050
     Dates: end: 20230821
  29. FERRO FUMARAT [Concomitant]
     Indication: Product used for unknown indication
     Dosage: 2 DF, ONCE WEEKLY (TUESDAY 1 AND FRIDAY 1)
     Route: 048
  30. ESOMEPRAZOLE [Concomitant]
     Active Substance: ESOMEPRAZOLE
     Indication: Product used for unknown indication
     Dosage: 1 DF, ONCE DAILY (MORNING)
     Route: 048
  31. LANETTE WAX [Concomitant]
     Indication: Product used for unknown indication
     Dosage: 1 DF, OTHER (APPLY 2 TO 3 TIMES A DAY)
     Route: 003
  32. DICLOFENAC DIETHYLAMINE [Concomitant]
     Active Substance: DICLOFENAC DIETHYLAMINE
     Indication: Product used for unknown indication
     Dosage: UNK UNK, UNKNOWN FREQ.
     Route: 003
  33. LOCOID [Concomitant]
     Active Substance: HYDROCORTISONE BUTYRATE
     Indication: Product used for unknown indication
     Dosage: 1 DF, EVERY 12 HOURS (APPLY TWICE A DAY)
     Route: 003

REACTIONS (12)
  - Pneumonia [Unknown]
  - Depression [Unknown]
  - Paraesthesia [Recovered/Resolved]
  - Dizziness [Recovered/Resolved]
  - Malaise [Recovered/Resolved]
  - Muscular weakness [Recovered/Resolved]
  - Diet noncompliance [Unknown]
  - Hypertension [Unknown]
  - Blood pressure fluctuation [Unknown]
  - Fall [Unknown]
  - Potentiating drug interaction [Recovered/Resolved]
  - Labelled drug-food interaction medication error [Unknown]

NARRATIVE: CASE EVENT DATE: 20240530
